FAERS Safety Report 6541897-9 (Version None)
Quarter: 2010Q1

REPORT INFORMATION
  Report Type: 
  Country: None (occurrence: None)
  Receive Date: 20100119
  Receipt Date: 20100112
  Transmission Date: 20100710
  Serious: Yes (Hospitalization, Other)
  Sender: FDA-Public Use
  Company Number: US-RB-024218-09

PATIENT
  Age: 32 Year
  Sex: Male

DRUGS (3)
  1. SUBOXONE [Suspect]
     Dosage: DOSE IS 8-12 MG PER DAY
     Route: 060
     Dates: start: 20090801
  2. VALIUM [Concomitant]
     Indication: ANXIETY
     Dosage: DOSING INFORMATION UNKNOWN
     Route: 065
  3. VALIUM [Concomitant]
     Dosage: DOSING INFORMATION UNKNOWN
     Route: 065

REACTIONS (10)
  - ANXIETY [None]
  - DECREASED APPETITE [None]
  - FALL [None]
  - FOOT FRACTURE [None]
  - INSOMNIA [None]
  - IRRITABILITY [None]
  - JAW DISORDER [None]
  - NAUSEA [None]
  - OVERDOSE [None]
  - SUICIDAL IDEATION [None]
